FAERS Safety Report 9697790 (Version 2)
Quarter: 2014Q1

REPORT INFORMATION
  Report Type: Spontaneous
  Country: US (occurrence: US)
  Receive Date: 20131120
  Receipt Date: 20140103
  Transmission Date: 20141002
  Serious: No
  Sender: FDA-Public Use
  Company Number: US-PFIZER INC-2013328836

PATIENT
  Sex: Male

DRUGS (1)
  1. DEPO-TESTOSTERONE [Suspect]
     Indication: BLOOD TESTOSTERONE DECREASED
     Dosage: 100MG/10ML

REACTIONS (4)
  - Product quality issue [Unknown]
  - Injection site paraesthesia [Unknown]
  - Drug ineffective [Unknown]
  - Accidental exposure to product [Unknown]
